FAERS Safety Report 23705612 (Version 1)
Quarter: 2024Q2

REPORT INFORMATION
  Report Type: Spontaneous
  Country: FR (occurrence: FR)
  Receive Date: 20240404
  Receipt Date: 20240404
  Transmission Date: 20240715
  Serious: Yes (Other)
  Sender: FDA-Public Use
  Company Number: None

PATIENT
  Age: 33 Year
  Sex: Female

DRUGS (5)
  1. EBASTINE [Suspect]
     Active Substance: EBASTINE
     Indication: Product dispensing error
     Dosage: 1 TABLET TAKEN IN MORNING INSTEAD OF IN THE EVENING
     Route: 048
     Dates: start: 20240212, end: 20240212
  2. DESOGESTREL [Suspect]
     Active Substance: DESOGESTREL
     Indication: Product dispensing error
     Dosage: 1 TABLET TAKEN IN THE MORNING INSTEAD OF IN THE EVENING
     Route: 048
     Dates: start: 20240212, end: 20240212
  3. ZINC GLUCONATE [Suspect]
     Active Substance: ZINC GLUCONATE
     Indication: Product dispensing error
     Dosage: 2 TABLET TAKEN IN THE MORNING INSTEAD OF IN THE EVENING
     Route: 048
     Dates: start: 20240212, end: 20240212
  4. LOXAPINE [Suspect]
     Active Substance: LOXAPINE
     Indication: Product dispensing error
     Dosage: ADMINISTRATION OF 1 TABL OF 50 MG (INSTEAD OF 0))
     Route: 048
     Dates: start: 20240212, end: 20240212
  5. VALIUM [Suspect]
     Active Substance: DIAZEPAM
     Indication: Product dispensing error
     Dosage: ADMINISTRATION OF 10 MG TAB INSTEAD OF 5 MG
     Route: 048
     Dates: start: 20240212, end: 20240212

REACTIONS (2)
  - Product dispensing error [Recovered/Resolved]
  - Somnolence [Recovered/Resolved]

NARRATIVE: CASE EVENT DATE: 20240212
